FAERS Safety Report 9182777 (Version 1)
Quarter: 2012Q4

REPORT INFORMATION
  Report Type: 
  Country: US (occurrence: US)
  Receive Date: 20121030
  Receipt Date: 20121030
  Transmission Date: 20130627
  Serious: Yes (Hospitalization)
  Sender: FDA-Public Use
  Company Number: US-BIOGENIDEC-2012BI047917

PATIENT
  Sex: Female

DRUGS (1)
  1. TYSABRI [Suspect]
     Indication: MULTIPLE SCLEROSIS
     Route: 042
     Dates: start: 20091210, end: 20100319

REACTIONS (4)
  - Eye disorder [Unknown]
  - Central nervous system lesion [Not Recovered/Not Resolved]
  - Paralysis [Not Recovered/Not Resolved]
  - Neuromyelitis optica [Unknown]
